FAERS Safety Report 9734404 (Version 2)
Quarter: 2013Q4

REPORT INFORMATION
  Report Type: Spontaneous
  Country: BR (occurrence: BR)
  Receive Date: 20131206
  Receipt Date: 20131215
  Transmission Date: 20140711
  Serious: Yes (Hospitalization, Other)
  Sender: FDA-Public Use
  Company Number: BR-AMGEN-BRASP2013085835

PATIENT
  Age: 70 Year
  Sex: Female

DRUGS (2)
  1. ENBREL [Suspect]
     Indication: PSORIATIC ARTHROPATHY
     Dosage: 50 MG, 1X/WEEK
     Route: 065
     Dates: start: 2013
  2. METHOTREXATE [Concomitant]
     Dosage: UNK
     Dates: start: 2013

REACTIONS (3)
  - Road traffic accident [Unknown]
  - Upper limb fracture [Unknown]
  - Joint dislocation [Unknown]
